FAERS Safety Report 14283763 (Version 5)
Quarter: 2018Q2

REPORT INFORMATION
  Report Type: Report from Study
  Country: US (occurrence: US)
  Receive Date: 20171213
  Receipt Date: 20180406
  Transmission Date: 20180711
  Serious: Yes (Other)
  Sender: FDA-Public Use
  Company Number: PHEH2017US040380

PATIENT
  Age: 35 Year
  Sex: Female
  Weight: 76.7 kg

DRUGS (4)
  1. MICRONOR [Concomitant]
     Active Substance: NORETHINDRONE
     Indication: CONTRACEPTION
     Dosage: 0.35 MG, UNK
     Route: 048
  2. AMANTADINE. [Concomitant]
     Active Substance: AMANTADINE HYDROCHLORIDE
     Indication: FATIGUE
     Dosage: 100 MG, BID
     Route: 048
  3. TIZANIDINE. [Concomitant]
     Active Substance: TIZANIDINE
     Indication: MUSCLE SPASTICITY
     Dosage: 6 MG, HS
     Route: 048
  4. GILENYA [Suspect]
     Active Substance: FINGOLIMOD HYDROCHLORIDE
     Indication: MULTIPLE SCLEROSIS
     Dosage: 0.5 MG, QD
     Route: 048
     Dates: start: 20170825

REACTIONS (11)
  - White blood cell count decreased [Recovered/Resolved]
  - Intervertebral disc disorder [Unknown]
  - Decreased immune responsiveness [Unknown]
  - Thyroid mass [Unknown]
  - Central nervous system lesion [Unknown]
  - Multiple sclerosis [Unknown]
  - Visual impairment [Recovering/Resolving]
  - Macular oedema [Recovered/Resolved]
  - Lymphocyte count decreased [Unknown]
  - Paraesthesia [Unknown]
  - Hypoaesthesia [Unknown]

NARRATIVE: CASE EVENT DATE: 20171226
